FAERS Safety Report 5018880-8 (Version None)
Quarter: 2006Q2

REPORT INFORMATION
  Report Type: 
  Country: None (occurrence: None)
  Receive Date: 20060531
  Receipt Date: 20060221
  Transmission Date: 20061013
  Serious: Yes (Death)
  Sender: FDA-Public Use
  Company Number: 06021702

PATIENT
  Age: 94 Year
  Sex: Female

DRUGS (7)
  1. WARFARIN SODIUM [Suspect]
     Indication: ATRIAL FIBRILLATION
     Dosage: 3MG,QD, ORAL
     Route: 048
  2. MORPHINE [Concomitant]
  3. FENTANYL [Concomitant]
  4. FUROSEMIDE SODIUM [Concomitant]
  5. SEROQUEL [Concomitant]
  6. ZOLOFT [Concomitant]
  7. EXELON [Concomitant]

REACTIONS (3)
  - FAECES DISCOLOURED [None]
  - INTERNATIONAL NORMALISED RATIO INCREASED [None]
  - PROTHROMBIN TIME PROLONGED [None]
